FAERS Safety Report 4380392-2 (Version None)
Quarter: 2004Q2

REPORT INFORMATION
  Report Type: 
  Country: None (occurrence: None)
  Receive Date: 20040618
  Receipt Date: 20040611
  Transmission Date: 20050107
  Serious: Yes (Hospitalization, Other)
  Sender: FDA-Public Use
  Company Number: BE-BRISTOL-MYERS SQUIBB COMPANY-12612198

PATIENT
  Age: 62 Year
  Sex: Male
  Weight: 68 kg

DRUGS (9)
  1. CARBOPLATIN [Suspect]
     Indication: MESOTHELIOMA
     Route: 042
     Dates: start: 20040316, end: 20040316
  2. ALIMTA [Suspect]
     Indication: MESOTHELIOMA
     Route: 042
     Dates: start: 20040316, end: 20040316
  3. ZANTAC [Concomitant]
     Indication: PROPHYLAXIS
     Route: 048
     Dates: start: 20030101
  4. TRAMADOL HCL [Concomitant]
     Indication: PAIN
     Route: 048
     Dates: start: 20030101
  5. FRAXIPARINE [Concomitant]
     Dates: start: 20030101
  6. SEREVENT [Concomitant]
     Route: 055
     Dates: start: 20030101
  7. FLIXOTIDE [Concomitant]
     Route: 055
     Dates: start: 20030101
  8. B12 [Concomitant]
     Indication: PROPHYLAXIS
  9. FOLIC ACID [Concomitant]
     Indication: PROPHYLAXIS

REACTIONS (4)
  - DEHYDRATION [None]
  - DIARRHOEA [None]
  - HERPES ZOSTER [None]
  - VOMITING [None]
